FAERS Safety Report 8817032 (Version 1)
Quarter: 2012Q4

REPORT INFORMATION
  Report Type: Spontaneous
  Country: US (occurrence: None)
  Receive Date: 20121003
  Receipt Date: 20121003
  Transmission Date: 20130627
  Serious: Yes (Life-Threatening)
  Sender: FDA-Public Use
  Company Number: None

PATIENT
  Age: 61 Year
  Sex: Female
  Weight: 88 kg

DRUGS (2)
  1. LIPITOR [Suspect]
     Indication: CHOLESTEROL BLOOD INCREASED
     Route: 048
     Dates: start: 20120809, end: 20120817
  2. LIPITOR [Suspect]
     Indication: TRIGLYCERIDE INCREASED
     Route: 048
     Dates: start: 20120809, end: 20120817

REACTIONS (3)
  - Pruritus [None]
  - Erythema [None]
  - Urticaria [None]
